FAERS Safety Report 9462391 (Version 1)
Quarter: 2013Q3

REPORT INFORMATION
  Report Type: Spontaneous
  Country: US (occurrence: None)
  Receive Date: 20130815
  Receipt Date: 20130815
  Transmission Date: 20140515
  Serious: Yes (Other)
  Sender: FDA-Public Use
  Company Number: None

PATIENT
  Age: 70 Year
  Sex: Female
  Weight: 65.77 kg

DRUGS (6)
  1. AFRIN SINUS [Suspect]
     Indication: NASAL CONGESTION
     Dosage: 2 SPRAYS EACH NOSTRIL
     Dates: start: 20130813, end: 20130813
  2. AFRIN SINUS [Suspect]
     Dosage: 2 SPRAYS EACH NOSTRIL
     Dates: start: 20130813, end: 20130813
  3. ZOLOFT [Concomitant]
  4. MIXED AMPHETAMINES [Concomitant]
  5. WELLBUTRIN [Concomitant]
  6. HBO2 [Concomitant]

REACTIONS (3)
  - Sinus headache [None]
  - Ear pain [None]
  - Oropharyngeal pain [None]
